FAERS Safety Report 12282882 (Version 2)
Quarter: 2016Q2

REPORT INFORMATION
  Report Type: Spontaneous
  Country: US (occurrence: US)
  Receive Date: 20160419
  Receipt Date: 20160421
  Transmission Date: 20160815
  Serious: Yes (Hospitalization)
  Sender: FDA-Public Use
  Company Number: US-APOTEX-2016AP007783

PATIENT

DRUGS (8)
  1. DULOXETINE HYDROCHLORIDE. [Suspect]
     Active Substance: DULOXETINE HYDROCHLORIDE
     Indication: ANXIETY
  2. LYRICA [Suspect]
     Active Substance: PREGABALIN
     Indication: FIBROMYALGIA
     Dosage: 100 MG, TID
     Route: 065
     Dates: end: 20160303
  3. PAXIL [Suspect]
     Active Substance: PAROXETINE HYDROCHLORIDE
     Indication: DEPRESSION
  4. DULOXETINE HYDROCHLORIDE. [Suspect]
     Active Substance: DULOXETINE HYDROCHLORIDE
     Indication: PAIN
     Dosage: 60 MG CAPSULE ONCE DAILY
     Route: 065
     Dates: start: 20160328, end: 20160405
  5. DULOXETINE HYDROCHLORIDE. [Suspect]
     Active Substance: DULOXETINE HYDROCHLORIDE
     Indication: PAIN IN EXTREMITY
  6. PAXIL [Suspect]
     Active Substance: PAROXETINE HYDROCHLORIDE
     Indication: STRESS
     Dosage: UNK
     Route: 065
     Dates: start: 2010, end: 20160328
  7. DULOXETINE HYDROCHLORIDE. [Suspect]
     Active Substance: DULOXETINE HYDROCHLORIDE
     Indication: ARTHRALGIA
  8. DULOXETINE HYDROCHLORIDE. [Suspect]
     Active Substance: DULOXETINE HYDROCHLORIDE
     Indication: DEPRESSION

REACTIONS (13)
  - Pruritus [Not Recovered/Not Resolved]
  - Abnormal behaviour [Recovering/Resolving]
  - Anxiety [Recovering/Resolving]
  - Peripheral coldness [Not Recovered/Not Resolved]
  - Nausea [Not Recovered/Not Resolved]
  - Irritability [Recovering/Resolving]
  - Nail discolouration [Recovered/Resolved]
  - Vasoconstriction [Unknown]
  - Thrombosis [Unknown]
  - Arthralgia [Unknown]
  - Skin fissures [Unknown]
  - Neuralgia [Not Recovered/Not Resolved]
  - Contusion [Not Recovered/Not Resolved]

NARRATIVE: CASE EVENT DATE: 201602
